FAERS Safety Report 15790220 (Version 6)
Quarter: 2020Q2

REPORT INFORMATION
  Report Type: Spontaneous
  Country: US (occurrence: US)
  Receive Date: 20190104
  Receipt Date: 20200427
  Transmission Date: 20200713
  Serious: No
  Sender: FDA-Public Use
  Company Number: US-SA-2019SA001546

PATIENT
  Age: 25 Year
  Sex: Male

DRUGS (2)
  1. DUPIXENT [Suspect]
     Active Substance: DUPILUMAB
     Indication: DERMATITIS ALLERGIC
     Dosage: 300 MG, QOW
     Route: 058
     Dates: start: 201805
  2. DUPIXENT [Suspect]
     Active Substance: DUPILUMAB
     Dosage: 300 MG, QOW
     Route: 058
     Dates: start: 20190601

REACTIONS (6)
  - Eye allergy [Unknown]
  - Drug ineffective [Unknown]
  - Insomnia [Unknown]
  - Arthralgia [Unknown]
  - Joint swelling [Unknown]
  - Asthenopia [Unknown]

NARRATIVE: CASE EVENT DATE: 2018
